FAERS Safety Report 21090927 (Version 1)
Quarter: 2022Q3

REPORT INFORMATION
  Report Type: Spontaneous
  Country: FR (occurrence: FR)
  Receive Date: 20220716
  Receipt Date: 20220716
  Transmission Date: 20221026
  Serious: Yes (Other)
  Sender: FDA-Public Use
  Company Number: None

PATIENT
  Age: 75 Year
  Sex: Male
  Weight: 60 kg

DRUGS (1)
  1. HYDROXYZINE HYDROCHLORIDE [Suspect]
     Active Substance: HYDROXYZINE HYDROCHLORIDE
     Indication: Anxiety
     Dosage: FREQUENCY TIME : 1 DAY, UNIT DOSE : 25MG, THERAPY START DATE : ASKU, THERAPY END DATE : ASKU
     Route: 065

REACTIONS (1)
  - Confusional state [Not Recovered/Not Resolved]

NARRATIVE: CASE EVENT DATE: 20220101
